FAERS Safety Report 19962220 (Version 1)
Quarter: 2021Q4

REPORT INFORMATION
  Report Type: Spontaneous
  Country: JP (occurrence: JP)
  Receive Date: 20211018
  Receipt Date: 20211018
  Transmission Date: 20220303
  Serious: Yes (Other)
  Sender: FDA-Public Use
  Company Number: JP-EPICPHARMA-JP-2021EPCLIT01062

PATIENT
  Sex: Male

DRUGS (3)
  1. PHENYTOIN [Suspect]
     Active Substance: PHENYTOIN
     Route: 064
  2. VALPROATE SODIUM [Suspect]
     Active Substance: VALPROATE SODIUM
     Indication: Foetal exposure during pregnancy
     Route: 064
  3. OXYTOCIN [Concomitant]
     Active Substance: OXYTOCIN
     Indication: Foetal exposure during pregnancy
     Route: 064

REACTIONS (2)
  - Foetal heart rate decreased [Recovered/Resolved]
  - Foetal exposure during pregnancy [Recovered/Resolved with Sequelae]
